FAERS Safety Report 5278996-8 (Version None)
Quarter: 2007Q1

REPORT INFORMATION
  Report Type: 
  Country: None (occurrence: None)
  Receive Date: 20070328
  Receipt Date: 20060929
  Transmission Date: 20070707
  Serious: No
  Sender: FDA-Public Use
  Company Number: US-AMGEN-US195324

PATIENT
  Sex: Female

DRUGS (4)
  1. NEULASTA [Suspect]
     Indication: CHEMOTHERAPY
     Route: 058
     Dates: start: 20060915
  2. TAXOTERE [Concomitant]
     Route: 042
  3. CYCLOPHOSPHAMIDE [Concomitant]
     Route: 042
  4. DOXORUBICIN HYDROCHLORIDE [Concomitant]
     Route: 042

REACTIONS (3)
  - HEADACHE [None]
  - NECK PAIN [None]
  - PYREXIA [None]
